FAERS Safety Report 15275166 (Version 2)
Quarter: 2018Q4

REPORT INFORMATION
  Report Type: Spontaneous
  Country: ES (occurrence: ES)
  Receive Date: 20180814
  Receipt Date: 20181003
  Transmission Date: 20190204
  Serious: Yes (Death, Life-Threatening, Hospitalization, Other)
  Sender: FDA-Public Use
  Company Number: ES-BAUSCH-BL-2018-022121

PATIENT
  Age: 67 Year
  Sex: Male

DRUGS (5)
  1. FLUOROURACIL. [Suspect]
     Active Substance: FLUOROURACIL
     Indication: RENAL CANCER METASTATIC
     Route: 065
  2. BRIVUDINE [Suspect]
     Active Substance: BRIVUDINE
     Indication: HERPES ZOSTER
     Dosage: 125 MG, QD
     Route: 065
  3. PANITUMUMAB [Concomitant]
     Active Substance: PANITUMUMAB
     Indication: RENAL CANCER METASTATIC
  4. LEUCOVORINE [Concomitant]
     Active Substance: LEUCOVORIN
     Indication: RENAL CANCER METASTATIC
  5. OXALIPLATIN. [Concomitant]
     Active Substance: OXALIPLATIN
     Indication: RENAL CANCER METASTATIC

REACTIONS (6)
  - Toxicity to various agents [Not Recovered/Not Resolved]
  - Mucosal inflammation [Not Recovered/Not Resolved]
  - Respiratory failure [Fatal]
  - Pancytopenia [Not Recovered/Not Resolved]
  - Multiple organ dysfunction syndrome [Fatal]
  - Labelled drug-drug interaction medication error [Fatal]
